FAERS Safety Report 6093239-3 (Version None)
Quarter: 2009Q1

REPORT INFORMATION
  Report Type: 
  Country: None (occurrence: None)
  Receive Date: 20090226
  Receipt Date: 20090220
  Transmission Date: 20090719
  Serious: Yes (Disabling)
  Sender: FDA-Public Use
  Company Number: CA-ASTRAZENECA-2009UW04871

PATIENT
  Sex: Male

DRUGS (2)
  1. ENTOCORT CAPSULES [Suspect]
     Indication: CROHN'S DISEASE
     Route: 048
  2. PREDNISONE [Concomitant]
     Indication: CROHN'S DISEASE

REACTIONS (1)
  - GLAUCOMA [None]
